FAERS Safety Report 7294264-7 (Version None)
Quarter: 2011Q1

REPORT INFORMATION
  Report Type: 
  Country: None (occurrence: None)
  Receive Date: 20110215
  Receipt Date: 20110203
  Transmission Date: 20110831
  Serious: Yes (Other)
  Sender: FDA-Public Use
  Company Number: RS-GENENTECH-313445

PATIENT
  Sex: Male
  Weight: 70 kg

DRUGS (5)
  1. DOXORUBICIN [Suspect]
     Indication: NON-HODGKIN'S LYMPHOMA
     Dosage: 100 MG, UNK
     Route: 042
     Dates: start: 20100526, end: 20101125
  2. VINCRISTINE [Concomitant]
     Indication: NON-HODGKIN'S LYMPHOMA
     Dosage: 2 MG, UNK
     Route: 042
     Dates: start: 20100526, end: 20101125
  3. RITUXIMAB [Suspect]
     Indication: NON-HODGKIN'S LYMPHOMA
     Dosage: 700 MG, UNK
     Route: 042
     Dates: start: 20100526, end: 20101125
  4. CYTOXAN [Suspect]
     Indication: NON-HODGKIN'S LYMPHOMA
     Dosage: 1500 MG, UNK
     Route: 042
     Dates: start: 20100526, end: 20101125
  5. PREDNISOLONE [Concomitant]
     Indication: NON-HODGKIN'S LYMPHOMA
     Dosage: 100 MG, UNK
     Route: 042
     Dates: start: 20100526, end: 20101125

REACTIONS (3)
  - NEUTROPENIA [None]
  - THROMBOPHLEBITIS [None]
  - WHITE BLOOD CELL COUNT DECREASED [None]
